FAERS Safety Report 7510436-8 (Version None)
Quarter: 2011Q2

REPORT INFORMATION
  Report Type: 
  Country: None (occurrence: None)
  Receive Date: 20110527
  Receipt Date: 20110523
  Transmission Date: 20111010
  Serious: Yes (Hospitalization, Other)
  Sender: FDA-Public Use
  Company Number: US-ELI_LILLY_AND_COMPANY-US201105000918

PATIENT
  Age: 55 Year
  Sex: Male
  Weight: 116.6 kg

DRUGS (2)
  1. EFFIENT [Suspect]
     Dosage: 10 MG, (MAINTENANCE DOSE), QD
     Route: 065
     Dates: end: 20110401
  2. EFFIENT [Suspect]
     Dosage: 60 MG, LOADING DOSE
     Route: 065

REACTIONS (1)
  - MALLORY-WEISS SYNDROME [None]
